FAERS Safety Report 8675476 (Version 4)
Quarter: 2014Q4

REPORT INFORMATION
  Report Type: Report from Study
  Country: US (occurrence: US)
  Receive Date: 20120720
  Receipt Date: 20141006
  Transmission Date: 20150529
  Serious: Yes (Hospitalization)
  Sender: FDA-Public Use
  Company Number: US-ROCHE-1085964

PATIENT
  Age: 37 Year
  Sex: Female
  Weight: 82.17 kg

DRUGS (13)
  1. CARBOPLATIN. [Suspect]
     Active Substance: CARBOPLATIN
     Indication: BREAST CANCER
     Dosage: LAST DOPSE PRIOR TO SAE ON 25/JUN/2012
     Route: 042
     Dates: start: 20120423
  2. TRASTUZUMAB [Suspect]
     Active Substance: TRASTUZUMAB
     Indication: BREAST CANCER
     Dosage: LAST DOSE PRIOR TO SAE ON 25/JUN/2012
     Route: 042
     Dates: start: 20120423
  3. PERCOCET [Concomitant]
     Active Substance: ACETAMINOPHEN\OXYCODONE HYDROCHLORIDE
     Dosage: 30/1950 MG
     Route: 065
     Dates: start: 20120530
  4. DOCETAXEL. [Suspect]
     Active Substance: DOCETAXEL
     Indication: BREAST CANCER
     Dosage: DATE OF LAST DOSE PRIOR TO SAE: 25/JUN/2012,DOSE:147MG
     Route: 042
     Dates: start: 20120423
  5. ATIVAN [Concomitant]
     Active Substance: LORAZEPAM
     Route: 065
     Dates: start: 20120216
  6. DECADRON [Concomitant]
     Active Substance: DEXAMETHASONE
     Route: 065
     Dates: start: 20120422
  7. NEULASTA [Concomitant]
     Active Substance: PEGFILGRASTIM
     Dosage: DAILY
     Route: 065
     Dates: start: 20120515
  8. KEPPRA [Concomitant]
     Active Substance: LEVETIRACETAM
     Route: 065
     Dates: start: 20120216
  9. LOMOTIL (UNITED STATES) [Concomitant]
     Route: 065
     Dates: start: 20120514
  10. ZOFRAN [Concomitant]
     Active Substance: ONDANSETRON HYDROCHLORIDE
     Route: 065
     Dates: start: 20120514
  11. VALIUM [Concomitant]
     Active Substance: DIAZEPAM
     Route: 065
     Dates: start: 20120320
  12. PERTUZUMAB [Suspect]
     Active Substance: PERTUZUMAB
     Indication: BREAST CANCER
     Dosage: LAST DOSE PRIOR TO SAE ON 25/JUN/2012
     Route: 042
     Dates: start: 20120423
  13. CETIRIZINE [Concomitant]
     Active Substance: CETIRIZINE HYDROCHLORIDE
     Dosage: 1-2 TABLETS
     Route: 065
     Dates: start: 20120620

REACTIONS (2)
  - Clostridium difficile colitis [Recovered/Resolved]
  - Dehydration [Recovered/Resolved]

NARRATIVE: CASE EVENT DATE: 20120705
